FAERS Safety Report 8090839-6 (Version None)
Quarter: 2012Q1

REPORT INFORMATION
  Report Type: 
  Country: None (occurrence: None)
  Receive Date: 20120131
  Receipt Date: 20120116
  Transmission Date: 20120608
  Serious: Yes (Other)
  Sender: FDA-Public Use
  Company Number: CA-JNJFOC-20120111535

PATIENT
  Sex: Female
  Weight: 92.99 kg

DRUGS (8)
  1. TRAZODONE HCL [Concomitant]
     Dosage: AT HOUR OF SLEEP
     Route: 065
  2. REACTINE [Concomitant]
     Route: 065
  3. REMICADE [Suspect]
     Indication: RHEUMATOID ARTHRITIS
     Route: 042
     Dates: start: 20080701
  4. REMICADE [Suspect]
     Indication: PSORIASIS
     Route: 042
     Dates: start: 20080701
  5. IMOVANE [Concomitant]
     Route: 065
  6. ATARAX [Concomitant]
     Route: 065
  7. FLONASE [Concomitant]
     Dosage: 2 SPRAYS EACH NOSTRIL DAILY
     Route: 045
  8. CODEINE [Concomitant]
     Dosage: 1-2 TABLETS ONCE IN 4 HOUR
     Route: 065

REACTIONS (3)
  - FALL [None]
  - BALANCE DISORDER [None]
  - CONCUSSION [None]
